FAERS Safety Report 9565776 (Version 1)
Quarter: 2013Q3

REPORT INFORMATION
  Report Type: Report from Study
  Country: JP (occurrence: JP)
  Receive Date: 20130930
  Receipt Date: 20130930
  Transmission Date: 20140515
  Serious: Yes (Hospitalization)
  Sender: FDA-Public Use
  Company Number: JP-GLAXOSMITHKLINE-B0922548A

PATIENT
  Age: 73 Year
  Sex: Male

DRUGS (2)
  1. GSK573719 [Suspect]
     Indication: CHRONIC OBSTRUCTIVE PULMONARY DISEASE
     Dosage: 125MCG PER DAY
     Route: 055
     Dates: start: 20120905, end: 20130903
  2. SULTANOL [Suspect]
     Indication: CHRONIC OBSTRUCTIVE PULMONARY DISEASE
     Route: 055
     Dates: start: 20120829, end: 20130903

REACTIONS (1)
  - Angina pectoris [Recovering/Resolving]
